FAERS Safety Report 21024944 (Version 2)
Quarter: 2022Q3

REPORT INFORMATION
  Report Type: Spontaneous
  Country: DZ (occurrence: DZ)
  Receive Date: 20220629
  Receipt Date: 20220712
  Transmission Date: 20221027
  Serious: Yes (Other)
  Sender: FDA-Public Use
  Company Number: DZ-CELLTRION INC.-2022DZ010233

PATIENT

DRUGS (1)
  1. INFLIXIMAB [Suspect]
     Active Substance: INFLIXIMAB
     Indication: Crohn^s disease
     Dosage: 10 MG/KG
     Route: 041
     Dates: start: 2019

REACTIONS (6)
  - Chest pain [Unknown]
  - Dyspnoea [Unknown]
  - Tachycardia [Unknown]
  - Face oedema [Unknown]
  - Urticaria [Unknown]
  - Overdose [Unknown]

NARRATIVE: CASE EVENT DATE: 20220622
